FAERS Safety Report 7898599-6 (Version None)
Quarter: 2011Q4

REPORT INFORMATION
  Report Type: 
  Country: None (occurrence: None)
  Receive Date: 20111107
  Receipt Date: 20111107
  Transmission Date: 20120403
  Serious: Yes (Other)
  Sender: FDA-Public Use
  Company Number: None

PATIENT
  Age: 40 Year
  Sex: Female
  Weight: 72.574 kg

DRUGS (1)
  1. CLINIQUE [Suspect]
     Indication: SKIN LESION
     Dosage: TINY AMOUNT SMOOTHED ON FACE
     Route: 061
     Dates: start: 20111101, end: 20111101

REACTIONS (1)
  - DERMATITIS CONTACT [None]
